FAERS Safety Report 6890658-X (Version None)
Quarter: 2010Q3

REPORT INFORMATION
  Report Type: 
  Country: None (occurrence: None)
  Receive Date: 20100731
  Receipt Date: 20090204
  Transmission Date: 20110219
  Serious: No
  Sender: FDA-Public Use
  Company Number: US-PFIZER INC-2009165651

PATIENT
  Sex: Female
  Weight: 70.295 kg

DRUGS (3)
  1. LIPITOR [Suspect]
     Indication: BLOOD CHOLESTEROL INCREASED
     Dosage: 20 MG, 1X/DAY
     Dates: start: 20090204
  2. FLUCONAZOLE [Concomitant]
     Indication: FUNGAL INFECTION
  3. VYTORIN [Concomitant]
     Dosage: UNK

REACTIONS (2)
  - PRURITUS [None]
  - RASH PAPULAR [None]
